FAERS Safety Report 7902977-6 (Version None)
Quarter: 2011Q4

REPORT INFORMATION
  Report Type: 
  Country: None (occurrence: None)
  Receive Date: 20111109
  Receipt Date: 20110317
  Transmission Date: 20120403
  Serious: No
  Sender: FDA-Public Use
  Company Number: US-BAYER-2011-023930

PATIENT
  Age: 63 Year
  Sex: Female

DRUGS (2)
  1. CLIMARA [Suspect]
     Indication: URINARY TRACT INFECTION
  2. CLIMARA [Suspect]
     Indication: OESTROGEN REPLACEMENT THERAPY
     Dosage: 100 MCG/24HR, UNK
     Route: 062
     Dates: start: 20100301

REACTIONS (2)
  - VAGINISMUS [None]
  - VULVOVAGINAL BURNING SENSATION [None]
